FAERS Safety Report 8924582 (Version 1)
Quarter: 2012Q4

REPORT INFORMATION
  Report Type: 
  Country: US (occurrence: None)
  Receive Date: 20121121
  Receipt Date: 20121121
  Transmission Date: 20130627
  Serious: Yes (Hospitalization)
  Sender: FDA-Public Use
  Company Number: None

PATIENT
  Sex: Female
  Weight: 78 kg

DRUGS (7)
  1. ALLOPURINOL [Suspect]
  2. CYTARABINE [Suspect]
  3. DAUNORUBICIN [Suspect]
  4. METHOTREXATE [Suspect]
  5. METHYLPREDNISOLONE [Suspect]
  6. PEG/L-ASPARAGINASE [Suspect]
  7. VINCRISTINE SULFATE [Suspect]

REACTIONS (3)
  - Blood bilirubin increased [None]
  - Transaminases increased [None]
  - Cholecystitis [None]
